FAERS Safety Report 20072403 (Version 1)
Quarter: 2021Q4

REPORT INFORMATION
  Report Type: Report from Study
  Country: PR (occurrence: PR)
  Receive Date: 20211116
  Receipt Date: 20211116
  Transmission Date: 20220303
  Serious: Yes (Disabling, Other)
  Sender: FDA-Public Use
  Company Number: PR-ABBVIE-21K-131-4160686-00

PATIENT
  Sex: Female
  Weight: 79.904 kg

DRUGS (1)
  1. VENCLEXTA [Suspect]
     Active Substance: VENETOCLAX
     Indication: Acute myeloid leukaemia
     Route: 048
     Dates: start: 20210422

REACTIONS (1)
  - Bedridden [Unknown]

NARRATIVE: CASE EVENT DATE: 20210101
